FAERS Safety Report 15116188 (Version 1)
Quarter: 2018Q3

REPORT INFORMATION
  Report Type: Spontaneous
  Country: US (occurrence: US)
  Receive Date: 20180612
  Receipt Date: 20180612
  Transmission Date: 20181010
  Serious: Yes (Hospitalization)
  Sender: FDA-Public Use
  Company Number: None

PATIENT
  Age: 23 Year
  Sex: Male

DRUGS (1)
  1. CEFEPIME [Suspect]
     Active Substance: CEFEPIME HYDROCHLORIDE
     Indication: OSTEOMYELITIS
     Route: 042
     Dates: start: 20180516, end: 20180608

REACTIONS (9)
  - White blood cell count decreased [None]
  - Urine odour abnormal [None]
  - Therapy cessation [None]
  - Retching [None]
  - Abdominal pain [None]
  - Back pain [None]
  - Urine abnormality [None]
  - Neutrophil count decreased [None]
  - Chromaturia [None]

NARRATIVE: CASE EVENT DATE: 20180608
